FAERS Safety Report 6663810-6 (Version None)
Quarter: 2010Q2

REPORT INFORMATION
  Report Type: 
  Country: None (occurrence: None)
  Receive Date: 20100401
  Receipt Date: 20100318
  Transmission Date: 20101027
  Serious: Yes (Hospitalization, Other)
  Sender: FDA-Public Use
  Company Number: BE-GENENTECH-299223

PATIENT
  Sex: Female

DRUGS (10)
  1. RANIBIZUMAB [Suspect]
     Indication: CHOROIDAL NEOVASCULARISATION
     Dosage: UNK
     Route: 031
     Dates: start: 20080718
  2. RANIBIZUMAB [Suspect]
     Dosage: UNK
     Route: 031
     Dates: start: 20080826
  3. MACUGEN [Concomitant]
     Indication: DRUG USE FOR UNKNOWN INDICATION
  4. ZOCOR [Concomitant]
     Indication: DRUG USE FOR UNKNOWN INDICATION
  5. BUMEX [Concomitant]
     Indication: DRUG USE FOR UNKNOWN INDICATION
  6. DEANXIT [Concomitant]
     Indication: DRUG USE FOR UNKNOWN INDICATION
  7. ISOTEN [Concomitant]
     Indication: DRUG USE FOR UNKNOWN INDICATION
  8. ESCITALOPRAM [Concomitant]
     Indication: DRUG USE FOR UNKNOWN INDICATION
  9. EXELON [Concomitant]
     Indication: DRUG USE FOR UNKNOWN INDICATION
  10. BROMAZEPAM [Concomitant]
     Indication: DRUG USE FOR UNKNOWN INDICATION

REACTIONS (7)
  - CATARACT NUCLEAR [None]
  - MACULAR SCAR [None]
  - RETINAL DISORDER [None]
  - RETINAL HAEMORRHAGE [None]
  - RETINAL PIGMENT EPITHELIAL TEAR [None]
  - RETINITIS [None]
  - VITRECTOMY [None]
